FAERS Safety Report 14845834 (Version 1)
Quarter: 2018Q2

REPORT INFORMATION
  Report Type: Spontaneous
  Country: JP (occurrence: JP)
  Receive Date: 20180504
  Receipt Date: 20180504
  Transmission Date: 20180711
  Serious: Yes (Hospitalization, Other)
  Sender: FDA-Public Use
  Company Number: JP-ALKEM LABORATORIES LIMITED-JP-ALKEM-2018-02800

PATIENT
  Age: 45 Year
  Sex: Female

DRUGS (2)
  1. OLANZAPINE. [Suspect]
     Active Substance: OLANZAPINE
     Indication: SCHIZOPHRENIA
     Dosage: 20 MG, QD (4 YEARS BEFORE THIS ADMISSION)
     Route: 065
  2. OLANZAPINE. [Suspect]
     Active Substance: OLANZAPINE
     Dosage: 30 MG, QD (ON DAY 0)
     Route: 065

REACTIONS (5)
  - Hyperinsulinaemic hypoglycaemia [Recovered/Resolved]
  - Metabolic disorder [Recovered/Resolved]
  - Drug ineffective [Unknown]
  - Dumping syndrome [Recovered/Resolved]
  - Schizophrenia [Recovered/Resolved]
